FAERS Safety Report 20175558 (Version 1)
Quarter: 2021Q4

REPORT INFORMATION
  Report Type: Spontaneous
  Country: JP (occurrence: JP)
  Receive Date: 20211213
  Receipt Date: 20211213
  Transmission Date: 20220303
  Serious: Yes (Hospitalization)
  Sender: FDA-Public Use
  Company Number: JP-LUPIN PHARMACEUTICALS INC.-2021-24323

PATIENT
  Age: 47 Year
  Sex: Female

DRUGS (2)
  1. BETAMETHASONE [Suspect]
     Active Substance: BETAMETHASONE
     Indication: Metatarsalgia
     Dosage: ADMINISTERED 1 INJECTION.
     Route: 065
  2. TRIAMCINOLONE [Suspect]
     Active Substance: TRIAMCINOLONE
     Indication: Metatarsalgia
     Dosage: ADMINISTERED 10 INJECTIONS.
     Route: 065

REACTIONS (2)
  - Joint dislocation [Recovered/Resolved]
  - Tendon disorder [Recovered/Resolved]
